FAERS Safety Report 24026521 (Version 3)
Quarter: 2024Q3

REPORT INFORMATION
  Report Type: Report from Study
  Country: CN (occurrence: CN)
  Receive Date: 20240628
  Receipt Date: 20240710
  Transmission Date: 20241017
  Serious: No
  Sender: ROCHE
  Company Number: CN-ROCHE-3286456

PATIENT
  Age: 56 Year
  Sex: Female
  Weight: 64.8 kg

DRUGS (5)
  1. ALECTINIB [Suspect]
     Active Substance: ALECTINIB
     Indication: Lung cancer metastatic
     Route: 048
     Dates: start: 20200905
  2. ALECTINIB [Suspect]
     Active Substance: ALECTINIB
     Route: 048
     Dates: start: 20211207
  3. SILIBININ [Concomitant]
     Active Substance: SILIBININ
     Route: 048
     Dates: start: 20220104
  4. HERBALS [Concomitant]
     Active Substance: HERBALS
     Route: 042
     Dates: start: 20220303, end: 20220306
  5. MANNATIDE [Concomitant]
     Route: 042
     Dates: start: 20230102, end: 20230104

REACTIONS (1)
  - Alanine aminotransferase increased [Not Recovered/Not Resolved]

NARRATIVE: CASE EVENT DATE: 20220304
